FAERS Safety Report 8215649 (Version 2)
Quarter: 2014Q4

REPORT INFORMATION
  Report Type: Spontaneous
  Country: US (occurrence: US)
  Receive Date: 20111031
  Receipt Date: 20141202
  Transmission Date: 20150529
  Serious: Yes (Hospitalization, Other)
  Sender: FDA-Public Use
  Company Number: US-GLAXOSMITHKLINE-A0893015A

PATIENT
  Age: 52 Year
  Sex: Male
  Weight: 109 kg

DRUGS (6)
  1. AVANDAMET [Suspect]
     Active Substance: METFORMIN HYDROCHLORIDE\ROSIGLITAZONE MALEATE
     Indication: DIABETES MELLITUS
     Route: 048
  2. METFORMIN [Concomitant]
     Active Substance: METFORMIN HYDROCHLORIDE
  3. CONCURRENT MEDICATIONS [Concomitant]
     Active Substance: UNSPECIFIED INGREDIENT
  4. AVANDIA [Suspect]
     Active Substance: ROSIGLITAZONE MALEATE
     Indication: DIABETES MELLITUS
     Route: 048
     Dates: start: 1998, end: 20080511
  5. GLIPIZIDE. [Concomitant]
     Active Substance: GLIPIZIDE
  6. NORVASC [Concomitant]
     Active Substance: AMLODIPINE BESYLATE

REACTIONS (26)
  - Memory impairment [Unknown]
  - Kidney infection [Unknown]
  - Palpitations [Unknown]
  - Pain [Unknown]
  - Swelling [Unknown]
  - Ill-defined disorder [Unknown]
  - Condition aggravated [Unknown]
  - Hypoglycaemia [Unknown]
  - Dyspnoea [Unknown]
  - Dizziness [Unknown]
  - Cardiovascular disorder [Unknown]
  - Cardiac disorder [Unknown]
  - Cerebrovascular accident [Recovered/Resolved with Sequelae]
  - Sepsis [Unknown]
  - Hemiplegia [Unknown]
  - Cardiac failure congestive [Unknown]
  - Visual impairment [Unknown]
  - Decreased interest [Unknown]
  - Peripheral swelling [Unknown]
  - Apparent death [Unknown]
  - Abasia [Unknown]
  - Cardiac arrest [Unknown]
  - Cardiac infection [Unknown]
  - Headache [Unknown]
  - Dysuria [Unknown]
  - Eye disorder [Unknown]

NARRATIVE: CASE EVENT DATE: 20031128
